FAERS Safety Report 7176808-9 (Version None)
Quarter: 2010Q4

REPORT INFORMATION
  Report Type: 
  Country: None (occurrence: None)
  Receive Date: 20101220
  Receipt Date: 20101210
  Transmission Date: 20110411
  Serious: Yes (Death)
  Sender: FDA-Public Use
  Company Number: US-PFIZER INC-2010169531

PATIENT
  Sex: Male

DRUGS (1)
  1. SUTENT [Suspect]
     Indication: BONE SARCOMA
     Dosage: 37.5 MG, UNK
     Dates: start: 20101013

REACTIONS (2)
  - BONE SARCOMA [None]
  - DISEASE PROGRESSION [None]
